FAERS Safety Report 6704929-0 (Version None)
Quarter: 2010Q2

REPORT INFORMATION
  Report Type: 
  Country: None (occurrence: None)
  Receive Date: 20100430
  Receipt Date: 20100225
  Transmission Date: 20101027
  Serious: No
  Sender: FDA-Public Use
  Company Number: US-ASTRAZENECA-2010SE08344

PATIENT
  Age: 74 Year
  Sex: Female
  Weight: 104.3 kg

DRUGS (4)
  1. NEXIUM [Suspect]
     Route: 048
  2. SYNTHROID [Concomitant]
  3. HYDROCHLOROTHIAZIDE [Concomitant]
  4. VIT D [Concomitant]

REACTIONS (1)
  - DRUG EFFECT DECREASED [None]
